FAERS Safety Report 4758087-2 (Version None)
Quarter: 2005Q3

REPORT INFORMATION
  Report Type: 
  Country: None (occurrence: None)
  Receive Date: 20050831
  Receipt Date: 20050815
  Transmission Date: 20060218
  Serious: Yes (Hospitalization)
  Sender: FDA-Public Use
  Company Number: MY-MERCK-0508MYS00006

PATIENT
  Age: 80 Year
  Sex: Female

DRUGS (2)
  1. FOSAMAX [Suspect]
     Indication: OSTEOPOROSIS POSTMENOPAUSAL
     Route: 048
     Dates: start: 20010101, end: 20050801
  2. CALCIUM (UNSPECIFIED) [Concomitant]
     Indication: OSTEOPOROSIS POSTMENOPAUSAL
     Route: 065

REACTIONS (3)
  - FALL [None]
  - FEMUR FRACTURE [None]
  - IMPAIRED HEALING [None]
